FAERS Safety Report 5083913-X (Version None)
Quarter: 2006Q3

REPORT INFORMATION
  Report Type: 
  Country: None (occurrence: None)
  Receive Date: 20060727
  Receipt Date: 20060411
  Transmission Date: 20061208
  Serious: Yes (Other)
  Sender: FDA-Public Use
  Company Number: 2006050754

PATIENT
  Age: 73 Year
  Sex: Female
  Weight: 76.2043 kg

DRUGS (5)
  1. LYRICA [Suspect]
     Indication: DIABETIC NEUROPATHY
     Dosage: 150 MG (50 MG, 3 IN 1 D)
     Dates: start: 20060401
  2. LYRICA [Suspect]
     Indication: VULVOVAGINAL DISCOMFORT
     Dosage: 150 MG (50 MG, 3 IN 1 D)
     Dates: start: 20060401
  3. ALTACE [Concomitant]
  4. GLUCOVANCE [Concomitant]
  5. LIPITOR [Concomitant]

REACTIONS (2)
  - DRUG INEFFECTIVE [None]
  - MIGRAINE [None]
